FAERS Safety Report 6361987-3 (Version None)
Quarter: 2009Q3

REPORT INFORMATION
  Report Type: 
  Country: None (occurrence: None)
  Receive Date: 20090918
  Receipt Date: 20090908
  Transmission Date: 20100115
  Serious: Yes (Hospitalization)
  Sender: FDA-Public Use
  Company Number: JP-WYE-H10906309

PATIENT
  Age: 63 Year
  Sex: Female

DRUGS (14)
  1. ZOSYN [Suspect]
     Indication: DRUG USE FOR UNKNOWN INDICATION
     Dosage: UNKNOWN
     Dates: start: 20090328, end: 20090420
  2. FUNGUARD [Concomitant]
     Indication: CLOSTRIDIAL INFECTION
     Dosage: UNKNOWN
     Dates: start: 20090325, end: 20090422
  3. PREDONINE [Concomitant]
     Indication: DRUG USE FOR UNKNOWN INDICATION
     Dates: start: 20090401
  4. FLUITRAN [Concomitant]
     Indication: DRUG USE FOR UNKNOWN INDICATION
     Dosage: UNKNOWN
  5. NITRODERM [Concomitant]
     Indication: DRUG USE FOR UNKNOWN INDICATION
     Dosage: UNKNOWN
  6. MEDICON [Concomitant]
     Indication: DRUG USE FOR UNKNOWN INDICATION
     Dosage: UNKNOWN
     Dates: start: 20090317, end: 20090320
  7. PROMAC [Concomitant]
     Indication: DRUG USE FOR UNKNOWN INDICATION
     Dosage: UNKNOWN
  8. URSO 250 [Concomitant]
     Indication: DRUG USE FOR UNKNOWN INDICATION
     Dosage: UNKNOWN
  9. OMEPRAL [Concomitant]
     Indication: DRUG USE FOR UNKNOWN INDICATION
     Dosage: UNKNOWN
  10. AMPHOTERICIN B [Suspect]
     Indication: DRUG USE FOR UNKNOWN INDICATION
     Route: 048
     Dates: start: 20090422
  11. SPRYCEL [Suspect]
     Route: 048
     Dates: start: 20090224, end: 20090421
  12. MAXIPIME [Concomitant]
     Indication: DRUG USE FOR UNKNOWN INDICATION
     Dosage: UNKNOWN
     Dates: start: 20090316, end: 20090327
  13. VANCOMYCIN HYDROCHLORIDE [Suspect]
     Indication: CLOSTRIDIAL INFECTION
     Dosage: 2 G EVERY
     Route: 042
     Dates: start: 20090413
  14. ZYLORIC [Concomitant]
     Indication: DRUG USE FOR UNKNOWN INDICATION
     Dosage: UNKNOWN

REACTIONS (6)
  - ASCITES [None]
  - ASPERGILLOSIS [None]
  - HEPATIC FUNCTION ABNORMAL [None]
  - HYPOALBUMINAEMIA [None]
  - PLEURAL EFFUSION [None]
  - PSEUDOMEMBRANOUS COLITIS [None]
